FAERS Safety Report 4365335-X (Version None)
Quarter: 2004Q2

REPORT INFORMATION
  Report Type: 
  Country: None (occurrence: None)
  Receive Date: 20040520
  Receipt Date: 20040514
  Transmission Date: 20050107
  Serious: Yes (Hospitalization, Disabling, Other)
  Sender: FDA-Public Use
  Company Number: 2004-04-1569

PATIENT
  Age: 32 Year
  Sex: Female

DRUGS (5)
  1. PEG-INTRON [Suspect]
     Indication: HEPATITIS C
     Dosage: 120 MCG QWK SUBCUTANEOUS
     Route: 058
     Dates: start: 20021101, end: 20031023
  2. RIBAVIRIN [Suspect]
     Indication: HEPATITIS C
     Dosage: 1000 MG QD ORAL
     Route: 048
     Dates: start: 20021101, end: 20031001
  3. XANAX [Concomitant]
  4. COZAAR [Concomitant]
  5. ORAL CONTRACEPTIVE (NOS) [Concomitant]

REACTIONS (8)
  - ANAEMIA [None]
  - BLINDNESS UNILATERAL [None]
  - HEADACHE [None]
  - OEDEMA [None]
  - OPTIC DISC DISORDER [None]
  - PUPILLARY DISORDER [None]
  - RETINAL EXUDATES [None]
  - RETINOPATHY [None]
